FAERS Safety Report 20612195 (Version 1)
Quarter: 2022Q1

REPORT INFORMATION
  Report Type: Spontaneous
  Country: US (occurrence: None)
  Receive Date: 20220318
  Receipt Date: 20220318
  Transmission Date: 20220423
  Serious: Yes (Life-Threatening)
  Sender: FDA-Public Use
  Company Number: None

PATIENT
  Age: 51 Year
  Sex: Male
  Weight: 93 kg

DRUGS (2)
  1. LYBALVI [Suspect]
     Active Substance: OLANZAPINE\SAMIDORPHAN L-MALATE
     Dates: start: 20211213, end: 20211214
  2. LYBALVI [Concomitant]
     Active Substance: OLANZAPINE\SAMIDORPHAN L-MALATE
     Dates: start: 20211213, end: 20211214

REACTIONS (12)
  - Sinus tachycardia [None]
  - Agitation [None]
  - Therapy cessation [None]
  - Drug use disorder [None]
  - Pulmonary oedema [None]
  - Tachypnoea [None]
  - Blood lactic acid decreased [None]
  - Anxiety [None]
  - Hyperhidrosis [None]
  - Nausea [None]
  - Diarrhoea [None]
  - Myalgia [None]

NARRATIVE: CASE EVENT DATE: 20211213
